FAERS Safety Report 8370892-2 (Version None)
Quarter: 2012Q2

REPORT INFORMATION
  Report Type: 
  Country: None (occurrence: None)
  Receive Date: 20120518
  Receipt Date: 20120320
  Transmission Date: 20120825
  Serious: No
  Sender: FDA-Public Use
  Company Number: US-ASTRAZENECA-2012SE00564

PATIENT
  Sex: Female

DRUGS (1)
  1. PRILOSEC OTC [Suspect]
     Indication: DYSPEPSIA
     Route: 048
     Dates: end: 20120214

REACTIONS (4)
  - INCORRECT DRUG ADMINISTRATION DURATION [None]
  - TINNITUS [None]
  - PHARYNGEAL OEDEMA [None]
  - HYPOACUSIS [None]
